FAERS Safety Report 13133969 (Version 1)
Quarter: 2017Q1

REPORT INFORMATION
  Report Type: Spontaneous
  Country: FR (occurrence: FR)
  Receive Date: 20170120
  Receipt Date: 20170120
  Transmission Date: 20170428
  Serious: Yes (Life-Threatening, Hospitalization, Other)
  Sender: FDA-Public Use
  Company Number: FR-ASTRAZENECA-2017SE04179

PATIENT
  Age: 48 Year
  Sex: Female

DRUGS (3)
  1. XANAX [Suspect]
     Active Substance: ALPRAZOLAM
     Route: 065
  2. XEROQUEL [Suspect]
     Active Substance: QUETIAPINE FUMARATE
     Route: 048
  3. SERESTA [Suspect]
     Active Substance: OXAZEPAM
     Route: 065

REACTIONS (4)
  - Drug abuse [Unknown]
  - Oxygen saturation decreased [Recovered/Resolved]
  - Alcohol abuse [Unknown]
  - Coma [Recovered/Resolved]
